FAERS Safety Report 16862017 (Version 1)
Quarter: 2019Q4

REPORT INFORMATION
  Report Type: Spontaneous
  Country: US (occurrence: US)
  Receive Date: 20190927
  Receipt Date: 20190927
  Transmission Date: 20200122
  Serious: Yes (Hospitalization)
  Sender: FDA-Public Use
  Company Number: None

PATIENT
  Age: 72 Year
  Sex: Female
  Weight: 57 kg

DRUGS (2)
  1. PANITUMUMAB [Suspect]
     Active Substance: PANITUMUMAB
     Indication: COLON CANCER STAGE IV
  2. 5-FU [Concomitant]
     Active Substance: FLUOROURACIL

REACTIONS (4)
  - Cardiac failure [None]
  - Chest pain [None]
  - Constipation [None]
  - Troponin increased [None]

NARRATIVE: CASE EVENT DATE: 20180821
